FAERS Safety Report 7302086-3 (Version None)
Quarter: 2011Q1

REPORT INFORMATION
  Report Type: 
  Country: None (occurrence: None)
  Receive Date: 20110218
  Receipt Date: 20110215
  Transmission Date: 20110831
  Serious: Yes (Hospitalization)
  Sender: FDA-Public Use
  Company Number: US-MEDIMMUNE-MEDI-0012274

PATIENT
  Sex: Female
  Weight: 7.4 kg

DRUGS (2)
  1. SYNAGIS [Suspect]
     Route: 030
     Dates: start: 20101101, end: 20101228
  2. SYNAGIS [Suspect]
     Route: 030
     Dates: start: 20101001, end: 20101001

REACTIONS (4)
  - TREMOR [None]
  - APNOEA [None]
  - RASH [None]
  - CYANOSIS [None]
